FAERS Safety Report 17135525 (Version 2)
Quarter: 2020Q1

REPORT INFORMATION
  Report Type: Spontaneous
  Country: US (occurrence: US)
  Receive Date: 20191210
  Receipt Date: 20200122
  Transmission Date: 20200409
  Serious: No
  Sender: FDA-Public Use
  Company Number: US-JNJFOC-20191210056

PATIENT
  Age: 27 Year
  Sex: Male
  Weight: 72.64 kg

DRUGS (1)
  1. STELARA [Suspect]
     Active Substance: USTEKINUMAB
     Indication: PSORIASIS
     Dosage: EVERY 3-3.5 MONTHS. START DATE 4 OR 5 YEARS
     Route: 058

REACTIONS (5)
  - Psoriasis [Unknown]
  - Syringe issue [Unknown]
  - Product dose omission [Unknown]
  - Product complaint [Unknown]
  - Accidental exposure to product [Unknown]

NARRATIVE: CASE EVENT DATE: 2019
